FAERS Safety Report 4465606-2 (Version None)
Quarter: 2004Q3

REPORT INFORMATION
  Report Type: 
  Country: None (occurrence: None)
  Receive Date: 20040929
  Receipt Date: 20040914
  Transmission Date: 20050211
  Serious: Yes (Hospitalization)
  Sender: FDA-Public Use
  Company Number: USA040978126

PATIENT
  Age: 14 Year

DRUGS (2)
  1. STRATTERA [Suspect]
     Indication: ATTENTION DEFICIT/HYPERACTIVITY DISORDER
     Dosage: 40 MG/1 DAY
     Dates: start: 20040901, end: 20040901
  2. LEXAPRO [Concomitant]

REACTIONS (3)
  - AMNESIA [None]
  - HALLUCINATION [None]
  - PSYCHOTIC DISORDER [None]
